FAERS Safety Report 5733435-5 (Version None)
Quarter: 2008Q2

REPORT INFORMATION
  Report Type: 
  Country: None (occurrence: None)
  Receive Date: 20080509
  Receipt Date: 20080502
  Transmission Date: 20081010
  Serious: Yes (Congenital Anomaly)
  Sender: FDA-Public Use
  Company Number: FR-BRISTOL-MYERS SQUIBB COMPANY-14177075

PATIENT
  Age: 7 Year
  Sex: Female

DRUGS (4)
  1. VIDEX [Suspect]
     Indication: HIV INFECTION
     Route: 064
  2. ZERIT [Suspect]
     Indication: HIV INFECTION
     Route: 064
  3. VIRACEPT [Suspect]
     Indication: HIV INFECTION
     Route: 064
  4. ZIDOVUDINE [Suspect]
     Indication: HIV INFECTION
     Route: 064

REACTIONS (9)
  - ARTHROPATHY [None]
  - BLOOD LACTATE DEHYDROGENASE INCREASED [None]
  - CONGENITAL CYSTIC KIDNEY DISEASE [None]
  - CONNECTIVE TISSUE DISORDER [None]
  - HYPERTRIGLYCERIDAEMIA [None]
  - LABORATORY TEST ABNORMAL [None]
  - LACTIC ACIDOSIS [None]
  - NEUTROPENIA [None]
  - PREGNANCY [None]
